FAERS Safety Report 7680887-X (Version None)
Quarter: 2011Q3

REPORT INFORMATION
  Report Type: 
  Country: None (occurrence: None)
  Receive Date: 20110812
  Receipt Date: 20110810
  Transmission Date: 20111222
  Serious: Yes (Life-Threatening, Other)
  Sender: FDA-Public Use
  Company Number: AU-PFIZER INC-2011183089

PATIENT
  Age: 35 Year
  Sex: Male

DRUGS (2)
  1. CLOZAPINE [Interacting]
     Dosage: 800 MG, 1X/DAY
     Dates: start: 20030819, end: 20101023
  2. EFFEXOR XR [Suspect]
     Dosage: 375 MG, UNK
     Route: 048
     Dates: start: 20031101, end: 20101023

REACTIONS (2)
  - CARDIOMYOPATHY [None]
  - DRUG INTERACTION [None]
